FAERS Safety Report 19488416 (Version 1)
Quarter: 2021Q3

REPORT INFORMATION
  Report Type: Report from Study
  Country: US (occurrence: US)
  Receive Date: 20210702
  Receipt Date: 20210702
  Transmission Date: 20211014
  Serious: Yes (Hospitalization)
  Sender: FDA-Public Use
  Company Number: US-BRISTOL-MYERS SQUIBB COMPANY-BMS-2021-062753

PATIENT
  Age: 64 Year
  Sex: Female
  Weight: 48.7 kg

DRUGS (2)
  1. OSIMERTINIB. [Suspect]
     Active Substance: OSIMERTINIB
     Indication: NON-SMALL CELL LUNG CANCER
     Dosage: 80 MILLIGRAM, QD
     Route: 048
     Dates: start: 20180221, end: 20210610
  2. DASATINIB. [Suspect]
     Active Substance: DASATINIB
     Indication: NON-SMALL CELL LUNG CANCER
     Dosage: 50 MG, 1?2 TIMES PER DAY
     Route: 048
     Dates: start: 20180221, end: 2020

REACTIONS (1)
  - Lung lobectomy [Unknown]

NARRATIVE: CASE EVENT DATE: 20210608
